FAERS Safety Report 8152931-7 (Version None)
Quarter: 2012Q1

REPORT INFORMATION
  Report Type: 
  Country: None (occurrence: None)
  Receive Date: 20120216
  Receipt Date: 20120216
  Transmission Date: 20120608
  Serious: Yes (Other)
  Sender: FDA-Public Use
  Company Number: None

PATIENT
  Age: 65 Year
  Sex: Female

DRUGS (4)
  1. CITRACEL PETITES (COLECALCIFEROL + CALCIUM CITRATE) FILM COATED TABLET [Suspect]
     Dosage: BOTTLE COUNT 200S ORAL
     Route: 048
     Dates: start: 20120119, end: 20120119
  2. ASPIRIN [Concomitant]
  3. BAYER ADVANCED ASPIRIN REGULAR STRENGTH (ACETYLSALIC ACID) MODIFIED RE [Suspect]
     Dosage: BOTTLE COUNT: NOT REPORTED, ORAL
     Route: 048
  4. MULTI-VITAMIN [Concomitant]

REACTIONS (1)
  - CHOKING [None]
